FAERS Safety Report 6052225-X (Version None)
Quarter: 2009Q1

REPORT INFORMATION
  Report Type: 
  Country: None (occurrence: None)
  Receive Date: 20090121
  Receipt Date: 20090107
  Transmission Date: 20090719
  Serious: Yes (Hospitalization, Other)
  Sender: FDA-Public Use
  Company Number: JPI-P-005323

PATIENT
  Age: 68 Year
  Sex: Male

DRUGS (10)
  1. LUVOX [Suspect]
     Indication: DEPRESSIVE SYMPTOM
     Dosage: (50 MG, 1 D) ,OTHER; (75 MG, 1 D) ,OTHER
     Route: 050
     Dates: start: 20080930, end: 20081006
  2. LUVOX [Suspect]
     Indication: DEPRESSIVE SYMPTOM
     Dosage: (50 MG, 1 D) ,OTHER; (75 MG, 1 D) ,OTHER
     Route: 050
     Dates: start: 20081007, end: 20081007
  3. HALOPERIDOL [Concomitant]
  4. LEVOMEPROMAZINE MALEATE [Concomitant]
  5. BROMPERIDOL [Concomitant]
  6. PERICIAZINE [Concomitant]
  7. PEROSPIRONE HYDROCHLORIDE HYDRATE [Concomitant]
  8. LACTOBACILLUS BIFIDUS, LYOPHILIZED [Concomitant]
  9. ENTERAL NUTRITION [Concomitant]
  10. MAGNESIUM OXIDE [Concomitant]

REACTIONS (2)
  - COMA [None]
  - EPILEPSY [None]
